FAERS Safety Report 5387688-6 (Version None)
Quarter: 2007Q3

REPORT INFORMATION
  Report Type: 
  Country: None (occurrence: None)
  Receive Date: 20070716
  Receipt Date: 20070705
  Transmission Date: 20080115
  Serious: Yes (Other)
  Sender: FDA-Public Use
  Company Number: JP-ASTRAZENECA-2007AP04154

PATIENT
  Age: 69 Year
  Sex: Male

DRUGS (2)
  1. ZOLADEX [Suspect]
     Indication: PROSTATE CANCER
     Route: 058
     Dates: start: 20060325, end: 20070628
  2. CASODEX [Concomitant]
     Indication: PROSTATE CANCER
     Route: 048

REACTIONS (2)
  - INJECTION SITE ABSCESS [None]
  - INJECTION SITE INDURATION [None]
